FAERS Safety Report 18228107 (Version 1)
Quarter: 2020Q3

REPORT INFORMATION
  Report Type: Spontaneous
  Country: US (occurrence: US)
  Receive Date: 20200903
  Receipt Date: 20200903
  Transmission Date: 20201103
  Serious: No
  Sender: FDA-Public Use
  Company Number: US-MYLANLABS-2020M1073807

PATIENT
  Age: 70 Year
  Sex: Male
  Weight: 145 kg

DRUGS (1)
  1. LIDOCAINE PATCH [Suspect]
     Active Substance: LIDOCAINE
     Indication: SCIATICA
     Dosage: 5 PERCENT
     Route: 003

REACTIONS (4)
  - Product quality issue [Not Recovered/Not Resolved]
  - Off label use [Unknown]
  - Product packaging difficult to open [Not Recovered/Not Resolved]
  - Product use issue [Not Recovered/Not Resolved]
